FAERS Safety Report 8415228-3 (Version None)
Quarter: 2012Q2

REPORT INFORMATION
  Report Type: 
  Country: None (occurrence: None)
  Receive Date: 20120323
  Receipt Date: 20111208
  Transmission Date: 20120825
  Serious: Yes (Other)
  Sender: FDA-Public Use
  Company Number: 163-21880-11121137

PATIENT
  Age: 54 Year
  Sex: Male

DRUGS (4)
  1. DECADRON [Concomitant]
  2. REVLIMID [Suspect]
     Indication: MULTIPLE MYELOMA
     Dosage: 20 MG, QD, PO DAYS 1-14, PO
     Route: 048
     Dates: start: 20111101, end: 20110101
  3. REVLIMID [Suspect]
     Indication: MULTIPLE MYELOMA
     Dosage: 20 MG, QD, PO DAYS 1-14, PO
     Route: 048
     Dates: start: 20110101
  4. VELCADE [Concomitant]

REACTIONS (1)
  - DISEASE PROGRESSION [None]
